FAERS Safety Report 5819723-2 (Version None)
Quarter: 2008Q3

REPORT INFORMATION
  Report Type: 
  Country: None (occurrence: None)
  Receive Date: 20080723
  Receipt Date: 20080711
  Transmission Date: 20090109
  Serious: Yes (Life-Threatening)
  Sender: FDA-Public Use
  Company Number: US-PFIZER INC-2008051185

PATIENT
  Sex: Female
  Weight: 116.4 kg

DRUGS (8)
  1. BLINDED PREGABALIN (CI-1008) [Suspect]
     Indication: PAIN MANAGEMENT
     Route: 048
     Dates: start: 20080616, end: 20080617
  2. ALLEGRA [Concomitant]
     Route: 048
  3. MULTI-VITAMINS [Concomitant]
     Route: 048
     Dates: start: 19920101, end: 20080602
  4. HYDROCHLOROTHIAZIDE [Concomitant]
     Route: 048
     Dates: start: 19980501
  5. POLYSACCHARIDE-IRON COMPLEX [Concomitant]
     Route: 048
     Dates: start: 20080525
  6. VITAMIN B-12 [Concomitant]
     Route: 048
     Dates: start: 20060101, end: 20080602
  7. FLUOXETINE [Concomitant]
     Route: 048
     Dates: start: 20080401
  8. PROCRIT [Concomitant]
     Route: 030
     Dates: start: 20080528, end: 20080617

REACTIONS (2)
  - ANAPHYLACTIC REACTION [None]
  - HYPOTENSION [None]
